FAERS Safety Report 8678684 (Version 2)
Quarter: 2012Q4

REPORT INFORMATION
  Report Type: 
  Country: GB (occurrence: GB)
  Receive Date: 20120723
  Receipt Date: 20121015
  Transmission Date: 20130627
  Serious: Yes (Death, Hospitalization)
  Sender: FDA-Public Use
  Company Number: PHHY2012GB062124

PATIENT
  Age: 77 Year
  Sex: Male

DRUGS (1)
  1. AMOXICILLIN\CLAVULANATE POTASSIUM [Suspect]
     Indication: CHOLECYSTITIS
     Route: 048
     Dates: start: 20120615, end: 20120622

REACTIONS (4)
  - Myocardial ischaemia [Fatal]
  - Cardiac arrest [Fatal]
  - Hepatic failure [Fatal]
  - Jaundice cholestatic [Not Recovered/Not Resolved]
